FAERS Safety Report 11505376 (Version 1)
Quarter: 2015Q3

REPORT INFORMATION
  Report Type: Spontaneous
  Country: US (occurrence: US)
  Receive Date: 20150915
  Receipt Date: 20150915
  Transmission Date: 20151125
  Serious: Yes (Other)
  Sender: FDA-Public Use
  Company Number: US-ROCHE-1006284

PATIENT
  Age: 68 Year
  Sex: Female

DRUGS (3)
  1. PEGASYS [Suspect]
     Active Substance: PEGINTERFERON ALFA-2A
     Indication: HEPATITIS C
     Route: 065
  2. COPEGUS [Concomitant]
     Active Substance: RIBAVIRIN
     Route: 065
  3. COPEGUS [Concomitant]
     Active Substance: RIBAVIRIN
     Route: 065

REACTIONS (5)
  - Corneal transplant [Unknown]
  - Hepatitis C [Unknown]
  - Rash [Unknown]
  - Neutropenia [Unknown]
  - Anaemia [Unknown]
